FAERS Safety Report 13839632 (Version 2)
Quarter: 2017Q3

REPORT INFORMATION
  Report Type: Spontaneous
  Country: AU (occurrence: AU)
  Receive Date: 20170807
  Receipt Date: 20170830
  Transmission Date: 20171127
  Serious: Yes (Death, Life-Threatening)
  Sender: FDA-Public Use
  Company Number: AU-CELGENEUS-AUS-20170707139

PATIENT
  Sex: Male

DRUGS (1)
  1. VIDAZA [Suspect]
     Active Substance: AZACITIDINE
     Indication: MYCOSIS FUNGOIDES
     Route: 058
     Dates: start: 20170109, end: 20170505

REACTIONS (5)
  - Endocarditis [Not Recovered/Not Resolved]
  - Cardiac failure [Fatal]
  - Multiple organ dysfunction syndrome [Fatal]
  - Staphylococcal sepsis [Not Recovered/Not Resolved]
  - Cardiac valve abscess [Not Recovered/Not Resolved]
